FAERS Safety Report 9624699 (Version 2)
Quarter: 2013Q4

REPORT INFORMATION
  Report Type: Spontaneous
  Country: JP (occurrence: None)
  Receive Date: 20131010
  Receipt Date: 20131108
  Transmission Date: 20140711
  Serious: Yes (Life-Threatening, Hospitalization, Other)
  Sender: FDA-Public Use
  Company Number: 2013P1019993

PATIENT
  Age: 79 Year
  Sex: Male

DRUGS (8)
  1. RILUTEK [Suspect]
     Indication: AMYOTROPHIC LATERAL SCLEROSIS
     Route: 048
     Dates: start: 201012, end: 20130917
  2. PROMAC D (POLAPREZINE) [Concomitant]
  3. BIOFERMIN (BACILLUS/LACTOBACILLUS ACIDOPHILUS/STREPTOCOCCUS FAECALIS) [Concomitant]
  4. MUCOSOLVAN (AMBROXOL HYDROCHLORIDE) [Concomitant]
  5. LENDORMIN (BROTIZOLAM) [Concomitant]
  6. GASMOTIN (MOSAPRIDE CITRATE) [Concomitant]
  7. FLIVAS (NAPTOPIDIL) [Concomitant]
  8. ACIDOPHILUS/STREPTOCOCCUS FAECALIS [Concomitant]

REACTIONS (3)
  - Autoimmune haemolytic anaemia [None]
  - Blood pressure increased [None]
  - Tachycardia [None]
